FAERS Safety Report 11156024 (Version 1)
Quarter: 2015Q2

REPORT INFORMATION
  Report Type: Spontaneous
  Country: US (occurrence: None)
  Receive Date: 20150529
  Receipt Date: 20150529
  Transmission Date: 20150821
  Serious: Yes (Hospitalization)
  Sender: FDA-Public Use
  Company Number: None

PATIENT
  Age: 60 Year
  Sex: Male
  Weight: 90.5 kg

DRUGS (4)
  1. 5FU [Suspect]
     Active Substance: FLUOROURACIL
     Route: 042
  2. HYDROUREA [Concomitant]
  3. ABRAXANE [Suspect]
     Active Substance: PACLITAXEL
     Dosage: 82.5 Q OTHER WEEK INTRAVENOUS
     Route: 042
  4. CHEMO/RT [Concomitant]

REACTIONS (1)
  - Pneumonia aspiration [None]

NARRATIVE: CASE EVENT DATE: 20150527
